FAERS Safety Report 6640925-X (Version None)
Quarter: 2010Q1

REPORT INFORMATION
  Report Type: 
  Country: None (occurrence: None)
  Receive Date: 20100318
  Receipt Date: 20100310
  Transmission Date: 20100710
  Serious: Yes (Other)
  Sender: FDA-Public Use
  Company Number: FR-KINGPHARMUSA00001-K201000193

PATIENT
  Age: 74 Year
  Sex: Male

DRUGS (14)
  1. ALTACE [Suspect]
     Dosage: 1.25 MG, QD
     Route: 048
     Dates: start: 20071128, end: 20100203
  2. ARANESP [Suspect]
     Indication: RENAL FAILURE CHRONIC
     Dosage: 20 MCG, QW
     Route: 058
     Dates: start: 20080205, end: 20080914
  3. ARANESP [Suspect]
     Dosage: 40 MCG, QW
     Route: 058
     Dates: start: 20080915
  4. ARANESP [Suspect]
     Dosage: 40 MCG, ONCE EVERY 10 DAYS
     Route: 058
     Dates: start: 20081028
  5. ARANESP [Suspect]
     Dosage: 40 MCG, BI-WEEKLY
     Route: 058
     Dates: start: 20090115, end: 20100203
  6. FLUOROURACIL [Concomitant]
  7. ATORVASTATIN CALCIUM [Concomitant]
     Dosage: UNK
     Dates: start: 20040225
  8. CYCLOPHOSPHAMIDE [Concomitant]
     Dosage: UNK
     Dates: start: 20080124, end: 20080515
  9. DEXAMETHASONE [Concomitant]
  10. RANITIDINE [Concomitant]
     Dosage: UNK
     Dates: start: 20091019
  11. THALIDOMIDE [Concomitant]
     Dosage: UNK
     Dates: start: 20060101, end: 20080515
  12. WARFARIN SODIUM [Concomitant]
     Dosage: UNK
     Dates: start: 20080124, end: 20090907
  13. MELPHALAN HYDROCHLORIDE [Concomitant]
  14. ALFACALCIDOL [Concomitant]

REACTIONS (5)
  - BLOOD PRODUCT TRANSFUSION DEPENDENT [None]
  - BONE MARROW FAILURE [None]
  - HYPERPARATHYROIDISM [None]
  - PANCYTOPENIA [None]
  - PARAPROTEINAEMIA [None]
